FAERS Safety Report 14911668 (Version 1)
Quarter: 2018Q2

REPORT INFORMATION
  Report Type: Spontaneous
  Country: FR (occurrence: FR)
  Receive Date: 20180518
  Receipt Date: 20180518
  Transmission Date: 20180711
  Serious: Yes (Other)
  Sender: FDA-Public Use
  Company Number: FR-MERCK KGAA-2048032

PATIENT
  Age: 48 Year
  Sex: Female

DRUGS (3)
  1. NOVOTHYROX [Suspect]
     Active Substance: LEVOTHYROXINE SODIUM
  2. NOVOTHYROX [Suspect]
     Active Substance: LEVOTHYROXINE SODIUM
     Indication: POST PROCEDURAL HYPOTHYROIDISM
  3. NOVOTHYROX [Suspect]
     Active Substance: LEVOTHYROXINE SODIUM

REACTIONS (54)
  - Hyperhidrosis [None]
  - Tinnitus [None]
  - Cognitive disorder [None]
  - Stress [None]
  - Chills [None]
  - Asthenia [None]
  - Social avoidant behaviour [None]
  - Loss of libido [None]
  - Loss of personal independence in daily activities [None]
  - Affect lability [None]
  - Syncope [None]
  - Fatigue [None]
  - Helplessness [None]
  - Menstruation irregular [None]
  - Tremor [None]
  - Hyperthyroidism [None]
  - Spinal pain [None]
  - Pain in extremity [None]
  - Migraine [None]
  - Vision blurred [None]
  - Dry mouth [None]
  - Malaise [None]
  - Nausea [None]
  - Vertigo [None]
  - Dyspnoea [None]
  - Anxiety [None]
  - Feeling abnormal [None]
  - Impaired reasoning [None]
  - Myalgia [None]
  - Blood pressure increased [None]
  - Palpitations [None]
  - Amenorrhoea [None]
  - Insomnia [None]
  - Altered state of consciousness [None]
  - Psychiatric symptom [None]
  - Aptyalism [None]
  - Muscular weakness [None]
  - Arthralgia [None]
  - Visual impairment [None]
  - Hypothyroidism [None]
  - Somnolence [None]
  - Nervousness [None]
  - Abdominal pain [None]
  - Fear [None]
  - Physical disability [None]
  - Depression [None]
  - Feeling of despair [None]
  - Asthenopia [None]
  - Tachycardia [None]
  - Pelvic pain [None]
  - Decreased activity [None]
  - Drug intolerance [None]
  - Partner stress [None]
  - Weight decreased [None]

NARRATIVE: CASE EVENT DATE: 20171120
